FAERS Safety Report 20054350 (Version 2)
Quarter: 2021Q4

REPORT INFORMATION
  Report Type: Report from Study
  Country: CN (occurrence: None)
  Receive Date: 20211110
  Receipt Date: 20211119
  Transmission Date: 20220303
  Serious: Yes (Hospitalization)
  Sender: FDA-Public Use
  Company Number: 2021A795190

PATIENT
  Age: 25919 Day
  Sex: Male

DRUGS (20)
  1. DURVALUMAB [Suspect]
     Active Substance: DURVALUMAB
     Indication: Small cell lung cancer extensive stage
     Dosage: 1500.0MG ONCE/SINGLE ADMINISTRATION
     Route: 042
     Dates: start: 20210827, end: 20210827
  2. DURVALUMAB [Suspect]
     Active Substance: DURVALUMAB
     Indication: Small cell lung cancer extensive stage
     Dosage: 1500.0MG ONCE/SINGLE ADMINISTRATION
     Route: 042
     Dates: start: 20210922, end: 20210922
  3. DURVALUMAB [Suspect]
     Active Substance: DURVALUMAB
     Indication: Small cell lung cancer extensive stage
     Dosage: 1500.0MG ONCE/SINGLE ADMINISTRATION
     Route: 042
     Dates: start: 20211013, end: 20211013
  4. DURVALUMAB [Suspect]
     Active Substance: DURVALUMAB
     Indication: Small cell lung cancer extensive stage
     Dosage: 1500.0MG ONCE/SINGLE ADMINISTRATION
     Route: 042
     Dates: start: 20211105, end: 20211105
  5. CARBOPLATIN [Suspect]
     Active Substance: CARBOPLATIN
     Indication: Small cell lung cancer extensive stage
     Dosage: 5 AUC; Q3W FOR THE FIRST 4 TO 6 CYCLES
     Route: 042
     Dates: start: 20210827, end: 20210827
  6. CARBOPLATIN [Suspect]
     Active Substance: CARBOPLATIN
     Indication: Small cell lung cancer extensive stage
     Dosage: 5 AUC; Q3W FOR THE FIRST 4 TO 6 CYCLES
     Route: 042
     Dates: start: 20210922, end: 20210922
  7. CARBOPLATIN [Suspect]
     Active Substance: CARBOPLATIN
     Indication: Small cell lung cancer extensive stage
     Dosage: 5 AUC; Q3W FOR THE FIRST 4 TO 6 CYCLES
     Route: 042
     Dates: start: 20211013, end: 20211013
  8. CARBOPLATIN [Suspect]
     Active Substance: CARBOPLATIN
     Indication: Small cell lung cancer extensive stage
     Dosage: 5 AUC; Q3W FOR THE FIRST 4 TO 6 CYCLES
     Route: 042
     Dates: start: 20211105, end: 20211105
  9. ETOPOSIDE [Suspect]
     Active Substance: ETOPOSIDE
     Indication: Small cell lung cancer extensive stage
     Dosage: 90.0MG/M2 ONCE/SINGLE ADMINISTRATION
     Route: 042
     Dates: start: 20210827, end: 20210827
  10. ETOPOSIDE [Suspect]
     Active Substance: ETOPOSIDE
     Indication: Small cell lung cancer extensive stage
     Dosage: 90.0MG/M2 ONCE/SINGLE ADMINISTRATION
     Route: 042
     Dates: start: 20210828, end: 20210828
  11. ETOPOSIDE [Suspect]
     Active Substance: ETOPOSIDE
     Indication: Small cell lung cancer extensive stage
     Dosage: 90.0MG/M2 ONCE/SINGLE ADMINISTRATION
     Route: 042
     Dates: start: 20210829, end: 20210829
  12. ETOPOSIDE [Suspect]
     Active Substance: ETOPOSIDE
     Indication: Small cell lung cancer extensive stage
     Dosage: 90.0MG/M2 ONCE/SINGLE ADMINISTRATION
     Route: 042
     Dates: start: 20210922, end: 20210922
  13. ETOPOSIDE [Suspect]
     Active Substance: ETOPOSIDE
     Indication: Small cell lung cancer extensive stage
     Dosage: 90.0MG/M2 ONCE/SINGLE ADMINISTRATION
     Route: 042
     Dates: start: 20210923, end: 20210923
  14. ETOPOSIDE [Suspect]
     Active Substance: ETOPOSIDE
     Indication: Small cell lung cancer extensive stage
     Dosage: 90.0MG/M2 ONCE/SINGLE ADMINISTRATION
     Route: 042
     Dates: start: 20210924, end: 20210924
  15. ETOPOSIDE [Suspect]
     Active Substance: ETOPOSIDE
     Indication: Small cell lung cancer extensive stage
     Dosage: 90.0MG/M2 ONCE/SINGLE ADMINISTRATION
     Route: 042
     Dates: start: 20211013, end: 20211013
  16. ETOPOSIDE [Suspect]
     Active Substance: ETOPOSIDE
     Indication: Small cell lung cancer extensive stage
     Dosage: 90.0MG/M2 ONCE/SINGLE ADMINISTRATION
     Route: 042
     Dates: start: 20211014, end: 20211014
  17. ETOPOSIDE [Suspect]
     Active Substance: ETOPOSIDE
     Indication: Small cell lung cancer extensive stage
     Dosage: 90.0MG/M2 ONCE/SINGLE ADMINISTRATION
     Route: 042
     Dates: start: 20211015, end: 20211015
  18. ETOPOSIDE [Suspect]
     Active Substance: ETOPOSIDE
     Indication: Small cell lung cancer extensive stage
     Dosage: 90.0MG/M2 ONCE/SINGLE ADMINISTRATION
     Route: 042
     Dates: start: 20211105, end: 20211105
  19. ETOPOSIDE [Suspect]
     Active Substance: ETOPOSIDE
     Indication: Small cell lung cancer extensive stage
     Dosage: 90.0MG/M2 ONCE/SINGLE ADMINISTRATION
     Route: 042
     Dates: start: 20211106, end: 20211106
  20. ETOPOSIDE [Suspect]
     Active Substance: ETOPOSIDE
     Indication: Small cell lung cancer extensive stage
     Dosage: 90.0MG/M2 ONCE/SINGLE ADMINISTRATION
     Route: 042
     Dates: start: 20211107, end: 20211107

REACTIONS (2)
  - White blood cell count decreased [Recovered/Resolved]
  - Neutrophil count decreased [Recovered/Resolved]

NARRATIVE: CASE EVENT DATE: 20211102
